FAERS Safety Report 6664729-7 (Version None)
Quarter: 2010Q1

REPORT INFORMATION
  Report Type: 
  Country: None (occurrence: None)
  Receive Date: 20100330
  Receipt Date: 20100324
  Transmission Date: 20100710
  Serious: Yes (Hospitalization)
  Sender: FDA-Public Use
  Company Number: CAP10000079

PATIENT
  Age: 86 Year
  Sex: Female

DRUGS (6)
  1. ACTONEL [Suspect]
     Indication: OSTEOPOROSIS
     Dosage: 35 MG ONCE WEEKLY, ORAL
     Route: 048
     Dates: start: 20050101
  2. NOVO-METOPROL (METOPROLOL TARTRATE) [Concomitant]
  3. AMLODIPINE BESYLATE [Concomitant]
  4. LIPITOR [Concomitant]
  5. CALCIUM + D (CALCIUM, ERGOCALCIFEROL) [Concomitant]
  6. PLAVIX [Concomitant]

REACTIONS (6)
  - BONE PAIN [None]
  - CORONARY ARTERY OCCLUSION [None]
  - CREPITATIONS [None]
  - EPISTAXIS [None]
  - SPINAL COLUMN INJURY [None]
  - SPINAL COMPRESSION FRACTURE [None]
